FAERS Safety Report 4641493-4 (Version None)
Quarter: 2005Q2

REPORT INFORMATION
  Report Type: 
  Country: None (occurrence: None)
  Receive Date: 20050421
  Receipt Date: 20030630
  Transmission Date: 20051028
  Serious: Yes (Hospitalization)
  Sender: FDA-Public Use
  Company Number: JP-GLAXOSMITHKLINE-B0303224A

PATIENT
  Age: 75 Year
  Sex: Male

DRUGS (3)
  1. HYCAMTIN [Suspect]
     Indication: SMALL CELL LUNG CANCER STAGE UNSPECIFIED
     Dosage: 1.6MG PER DAY
     Route: 042
     Dates: start: 20030331, end: 20030525
  2. DEXAMETHASONE [Concomitant]
     Indication: PROPHYLAXIS
     Dosage: 4MG PER DAY
     Route: 042
     Dates: start: 20030331, end: 20030525
  3. ZOFRAN [Concomitant]
     Indication: VOMITING
     Dosage: 4MG PER DAY
     Route: 042
     Dates: start: 20030331, end: 20030525

REACTIONS (9)
  - ANAEMIA [None]
  - ANOREXIA [None]
  - CHEST X-RAY ABNORMAL [None]
  - DYSPNOEA [None]
  - DYSPNOEA EXERTIONAL [None]
  - HYPOPROTEINAEMIA [None]
  - INTERSTITIAL LUNG DISEASE [None]
  - PLATELET COUNT DECREASED [None]
  - WHITE BLOOD CELL COUNT DECREASED [None]
